FAERS Safety Report 6619677-5 (Version None)
Quarter: 2010Q1

REPORT INFORMATION
  Report Type: 
  Country: None (occurrence: None)
  Receive Date: 20100309
  Receipt Date: 20100224
  Transmission Date: 20100710
  Serious: No
  Sender: FDA-Public Use
  Company Number: US-ELI_LILLY_AND_COMPANY-US200912002369

PATIENT
  Sex: Female
  Weight: 63.492 kg

DRUGS (20)
  1. CYMBALTA [Suspect]
     Indication: DEPRESSION
     Dosage: 30 MG, UNK
     Dates: start: 20060125, end: 20060201
  2. CYMBALTA [Suspect]
     Dosage: 60 MG, UNK
  3. CYMBALTA [Suspect]
     Dosage: 90 MG, UNK
  4. CYMBALTA [Suspect]
     Dosage: 120 MG, UNK
  5. SYNTHROID [Concomitant]
  6. FOLIC ACID [Concomitant]
  7. ALTACE [Concomitant]
  8. NEURONTIN [Concomitant]
  9. PRAVACHOL [Concomitant]
  10. COUMADIN [Concomitant]
  11. LUNESTA [Concomitant]
  12. DARVOCET-N 100 [Concomitant]
  13. DURAGESIC-100 [Concomitant]
  14. SOMA [Concomitant]
  15. XANAX                                   /SCH/ [Concomitant]
  16. FOSAMAX [Concomitant]
  17. CITRACAL [Concomitant]
  18. TRILEPTAL [Concomitant]
  19. ASPIRIN [Concomitant]
  20. PROVIGIL [Concomitant]

REACTIONS (2)
  - GAMMA-GLUTAMYLTRANSFERASE INCREASED [None]
  - HEPATIC ENZYME INCREASED [None]
